FAERS Safety Report 14223293 (Version 1)
Quarter: 2017Q4

REPORT INFORMATION
  Report Type: Spontaneous
  Country: TW (occurrence: TW)
  Receive Date: 20171124
  Receipt Date: 20171124
  Transmission Date: 20180321
  Serious: Yes (Death, Hospitalization)
  Sender: FDA-Public Use
  Company Number: TW-STRIDES ARCOLAB LIMITED-2017SP014149

PATIENT

DRUGS (2)
  1. TACROLIMUS. [Suspect]
     Active Substance: TACROLIMUS
     Indication: LIVER TRANSPLANT
     Dosage: UNK
     Route: 065
  2. TACROLIMUS. [Suspect]
     Active Substance: TACROLIMUS
     Dosage: DOSE TAPERING, UNKNOWN
     Route: 065

REACTIONS (7)
  - Pyrexia [Unknown]
  - Urinary tract infection [Unknown]
  - Encephalopathy [Fatal]
  - Sepsis [Fatal]
  - Hepatitis E [Unknown]
  - Jaundice [Unknown]
  - Influenza like illness [Unknown]
